FAERS Safety Report 15371113 (Version 1)
Quarter: 2018Q3

REPORT INFORMATION
  Report Type: Spontaneous
  Country: US (occurrence: US)
  Receive Date: 20180911
  Receipt Date: 20180911
  Transmission Date: 20181010
  Serious: Yes (Other)
  Sender: FDA-Public Use
  Company Number: US-OTSUKA-2018_025821

PATIENT

DRUGS (1)
  1. ABILIFY [Suspect]
     Active Substance: ARIPIPRAZOLE
     Indication: POST-TRAUMATIC STRESS DISORDER
     Dosage: APPROXIMATELY 4?10 MG
     Route: 065
     Dates: start: 200501, end: 200712

REACTIONS (8)
  - Obsessive-compulsive disorder [Unknown]
  - Economic problem [Unknown]
  - Eating disorder [Recovered/Resolved]
  - Product use in unapproved indication [Unknown]
  - Compulsive shopping [Recovered/Resolved]
  - Bankruptcy [Unknown]
  - Metabolic surgery [Unknown]
  - Compulsive hoarding [Recovered/Resolved]

NARRATIVE: CASE EVENT DATE: 2005
